FAERS Safety Report 5780613-5 (Version None)
Quarter: 2008Q2

REPORT INFORMATION
  Report Type: 
  Country: None (occurrence: None)
  Receive Date: 20080620
  Receipt Date: 20080612
  Transmission Date: 20081010
  Serious: Yes (Other)
  Sender: FDA-Public Use
  Company Number: US-ELI_LILLY_AND_COMPANY-US200806002875

PATIENT
  Sex: Female

DRUGS (3)
  1. HUMULIN 70/30 [Suspect]
  2. HUMULIN 70/30 [Suspect]
  3. HUMALOG [Suspect]

REACTIONS (7)
  - CARDIAC FAILURE [None]
  - CARDIAC OPERATION [None]
  - CARDIOMEGALY [None]
  - HYPERTENSION [None]
  - MALAISE [None]
  - MEMORY IMPAIRMENT [None]
  - WRONG DRUG ADMINISTERED [None]
